FAERS Safety Report 6374376-2 (Version None)
Quarter: 2009Q3

REPORT INFORMATION
  Report Type: 
  Country: None (occurrence: None)
  Receive Date: 20090924
  Receipt Date: 20090629
  Transmission Date: 20100115
  Serious: No
  Sender: FDA-Public Use
  Company Number: A0794337A

PATIENT
  Age: 49 Year
  Sex: Male

DRUGS (3)
  1. EPZICOM [Suspect]
     Indication: HIV INFECTION
     Route: 048
     Dates: end: 20090629
  2. INTELENCE [Concomitant]
  3. ISENTRESS [Concomitant]

REACTIONS (3)
  - ALTERED VISUAL DEPTH PERCEPTION [None]
  - BLOOD PRESSURE INCREASED [None]
  - VISION BLURRED [None]
